FAERS Safety Report 8836754 (Version 1)
Quarter: 2012Q4

REPORT INFORMATION
  Report Type: 
  Country: US (occurrence: US)
  Receive Date: 20121012
  Receipt Date: 20121012
  Transmission Date: 20130627
  Serious: Yes (Other)
  Sender: FDA-Public Use
  Company Number: US-BAYER-2012-104094

PATIENT
  Age: 15 Year
  Sex: Female

DRUGS (8)
  1. YASMIN [Suspect]
  2. ORTHO-CYCLEN [Concomitant]
  3. RISPERDAL [Concomitant]
     Indication: SUICIDAL IDEATION
  4. RISPERDAL [Concomitant]
     Indication: BIPOLAR DISORDER
  5. ABILIFY [Concomitant]
     Indication: BIPOLAR DISORDER
  6. ABILIFY [Concomitant]
     Indication: SUICIDAL IDEATION
  7. ZOLOFT [Concomitant]
     Indication: BIPOLAR DISORDER
  8. ZOLOFT [Concomitant]
     Indication: SUICIDAL IDEATION

REACTIONS (1)
  - Cerebellar infarction [Recovering/Resolving]
